FAERS Safety Report 5519393-7 (Version None)
Quarter: 2007Q4

REPORT INFORMATION
  Report Type: 
  Country: None (occurrence: None)
  Receive Date: 20071116
  Receipt Date: 20071116
  Transmission Date: 20080405
  Serious: Yes (Other)
  Sender: FDA-Public Use
  Company Number: A0694923A

PATIENT
  Age: 40 Year
  Sex: Female

DRUGS (5)
  1. ALLI [Suspect]
     Indication: WEIGHT CONTROL
     Dates: start: 20070801, end: 20071115
  2. MULTI-VITAMIN [Concomitant]
  3. OSTEO BI-FLEX [Concomitant]
     Indication: MEDICAL DIET
  4. PROBIOTIC [Concomitant]
     Indication: MEDICAL DIET
  5. ASTELIN [Concomitant]
     Indication: SEASONAL ALLERGY

REACTIONS (1)
  - ASPARTATE AMINOTRANSFERASE INCREASED [None]
